FAERS Safety Report 26117219 (Version 1)
Quarter: 2025Q4

REPORT INFORMATION
  Report Type: Spontaneous
  Country: CN (occurrence: CN)
  Receive Date: 20251203
  Receipt Date: 20251203
  Transmission Date: 20260118
  Serious: Yes (Death, Other)
  Sender: INNOVIVA
  Company Number: CN-INNOVIVA SPECIALTY THERAPEUTICS-2025-ISTX-000232

PATIENT

DRUGS (2)
  1. XACDURO [Suspect]
     Active Substance: DURLOBACTAM SODIUM\SULBACTAM SODIUM
     Indication: Pneumonia acinetobacter
     Dosage: PATIENT RECEIVED 16 PACKAGES
     Route: 041
     Dates: start: 20250913, end: 202509
  2. XACDURO [Suspect]
     Active Substance: DURLOBACTAM SODIUM\SULBACTAM SODIUM
     Indication: Haemofiltration
     Dosage: PATIENT RECEIVED 14 PACKAGES
     Route: 041
     Dates: start: 20251022, end: 20251028

REACTIONS (2)
  - Pneumonia acinetobacter [Fatal]
  - Drug ineffective for unapproved indication [Unknown]
